FAERS Safety Report 9581731 (Version 1)
Quarter: 2013Q4

REPORT INFORMATION
  Report Type: Spontaneous
  Country: US (occurrence: US)
  Receive Date: 20131002
  Receipt Date: 20131002
  Transmission Date: 20140711
  Serious: No
  Sender: FDA-Public Use
  Company Number: US-PURDUE-USA-2012-0081660

PATIENT
  Sex: Male

DRUGS (2)
  1. BUTRANS [Suspect]
     Indication: BACK PAIN
     Dosage: 10 MCG, Q1H
     Route: 062
  2. PERCOCET                           /00446701/ [Concomitant]
     Indication: BACK PAIN
     Dosage: UNK

REACTIONS (1)
  - Inadequate analgesia [Unknown]
